FAERS Safety Report 5236772-6 (Version None)
Quarter: 2007Q1

REPORT INFORMATION
  Report Type: 
  Country: None (occurrence: None)
  Receive Date: 20061208
  Receipt Date: 20041206
  Transmission Date: 20070707
  Serious: Yes (Other)
  Sender: FDA-Public Use
  Company Number: 2004UW25170

PATIENT
  Sex: Female

DRUGS (3)
  1. CRESTOR [Suspect]
     Dosage: 10 MG PO
     Route: 048
     Dates: start: 20040501
  2. CRESTOR [Suspect]
     Dosage: 5 MG PO
     Route: 048
     Dates: start: 20040501
  3. ZIAC [Concomitant]

REACTIONS (11)
  - ARTHRALGIA [None]
  - EAR PAIN [None]
  - EYE PAIN [None]
  - FACIAL PAIN [None]
  - HEADACHE [None]
  - NIGHT SWEATS [None]
  - PAIN [None]
  - PHARYNGOLARYNGEAL PAIN [None]
  - PYREXIA [None]
  - SLEEP DISORDER [None]
  - TOOTHACHE [None]
